FAERS Safety Report 7473657-9 (Version None)
Quarter: 2011Q2

REPORT INFORMATION
  Report Type: 
  Country: None (occurrence: None)
  Receive Date: 20110511
  Receipt Date: 20100221
  Transmission Date: 20111010
  Serious: No
  Sender: FDA-Public Use
  Company Number: US-BAYER-201015061NA

PATIENT
  Sex: Female

DRUGS (1)
  1. MIRENA [Suspect]
     Dosage: 20 ?G/D, UNK
     Route: 015
     Dates: start: 20100107

REACTIONS (4)
  - PAIN IN EXTREMITY [None]
  - FEELING ABNORMAL [None]
  - SENSATION OF HEAVINESS [None]
  - MUSCLE SPASMS [None]
